FAERS Safety Report 9434302 (Version 1)
Quarter: 2013Q3

REPORT INFORMATION
  Report Type: Spontaneous
  Country: US (occurrence: None)
  Receive Date: 20130731
  Receipt Date: 20130731
  Transmission Date: 20140515
  Serious: No
  Sender: FDA-Public Use
  Company Number: None

PATIENT
  Age: 41 Year
  Sex: Female

DRUGS (1)
  1. INH [Suspect]
     Dates: start: 20120101, end: 20120402

REACTIONS (9)
  - Drug-induced liver injury [None]
  - Fatigue [None]
  - Abdominal pain [None]
  - Abdominal discomfort [None]
  - Decreased appetite [None]
  - Jaundice [None]
  - Aspartate aminotransferase increased [None]
  - Alanine aminotransferase increased [None]
  - Blood alkaline phosphatase increased [None]
